FAERS Safety Report 7574382-6 (Version None)
Quarter: 2011Q2

REPORT INFORMATION
  Report Type: 
  Country: None (occurrence: None)
  Receive Date: 20110621
  Receipt Date: 20110607
  Transmission Date: 20111010
  Serious: Yes (Death, Hospitalization, Other)
  Sender: FDA-Public Use
  Company Number: 2011P1006503

PATIENT
  Age: 76 Year
  Sex: Male
  Weight: 95 kg

DRUGS (16)
  1. WARFARIN SODIUM [Suspect]
     Indication: ANGIOPATHY
     Dosage: ; QD; PO
     Route: 048
     Dates: start: 20110430, end: 20110501
  2. ASPIRIN [Concomitant]
  3. MORPHINE SULFATE [Concomitant]
  4. LASIX [Concomitant]
  5. PRAVASTATIN [Concomitant]
  6. WARFARIN SODIUM [Suspect]
     Indication: ANGIOPATHY
     Dosage: ; QD; PO
     Route: 048
     Dates: start: 20110502, end: 20110504
  7. COLACE [Concomitant]
  8. MORPHINE SULFATE [Concomitant]
  9. WARFARIN SODIUM [Suspect]
     Indication: ANGIOPATHY
     Dosage: ; QD; PO
     Route: 048
     Dates: start: 20110422, end: 20110424
  10. METOPROLOL TARTRATE [Concomitant]
  11. LOVENOX [Concomitant]
  12. AMLODIPINE [Concomitant]
  13. PREDNISONE [Concomitant]
  14. MILK OF MAGNESIA TAB [Concomitant]
  15. VALIUM [Concomitant]
  16. MOMETASONE INHALER [Concomitant]

REACTIONS (8)
  - RESPIRATORY DISTRESS [None]
  - HAEMORRHAGE [None]
  - CARDIO-RESPIRATORY ARREST [None]
  - INTERNATIONAL NORMALISED RATIO INCREASED [None]
  - FOREIGN BODY ASPIRATION [None]
  - HAEMOGLOBIN DECREASED [None]
  - PLATELET COUNT DECREASED [None]
  - HAEMATOCRIT DECREASED [None]
